FAERS Safety Report 7153685 (Version 9)
Quarter: 2013Q2

REPORT INFORMATION
  Report Type: Spontaneous
  Country: US (occurrence: US)
  Receive Date: 20091020
  Receipt Date: 20121227
  Transmission Date: 20140414
  Serious: Yes (Hospitalization)
  Sender: FDA-Public Use
  Company Number: PHEH2009US13161

PATIENT
  Age: 44 Year
  Sex: Female

DRUGS (2)
  1. EXJADE [Suspect]
     Indication: SICKLE CELL ANAEMIA
     Dosage: 2500 MG DAILY
     Route: 048
  2. EXJADE [Suspect]
     Dosage: 1500 MG DAILY
     Route: 048

REACTIONS (2)
  - SICKLE CELL ANAEMIA WITH CRISIS [Unknown]
  - PAIN [Unknown]
